FAERS Safety Report 8161492-8 (Version None)
Quarter: 2012Q1

REPORT INFORMATION
  Report Type: 
  Country: None (occurrence: None)
  Receive Date: 20120103
  Receipt Date: 20111003
  Transmission Date: 20120608
  Serious: No
  Sender: FDA-Public Use
  Company Number: AE-2011-001968

PATIENT
  Age: 60 Year
  Sex: Male
  Weight: 79.8331 kg

DRUGS (4)
  1. RIBAVIRIN [Concomitant]
  2. PEGASYS [Concomitant]
  3. TYLENOL WITH CODEINE (PANADEINE CO) [Concomitant]
  4. INCIVEK [Suspect]
     Dosage: 1125 MG (375 MG, 3 IN 1 D), ORAL
     Route: 048
     Dates: start: 20110930

REACTIONS (6)
  - UNDERDOSE [None]
  - INSOMNIA [None]
  - INFLUENZA LIKE ILLNESS [None]
  - FEELING ABNORMAL [None]
  - CHILLS [None]
  - FATIGUE [None]
